FAERS Safety Report 8192572-9 (Version None)
Quarter: 2012Q1

REPORT INFORMATION
  Report Type: 
  Country: None (occurrence: None)
  Receive Date: 20120308
  Receipt Date: 20120305
  Transmission Date: 20120608
  Serious: Yes (Other)
  Sender: FDA-Public Use
  Company Number: US-TEVA-317780USA

PATIENT
  Sex: Female

DRUGS (1)
  1. COPAXONE [Suspect]
     Indication: MULTIPLE SCLEROSIS
     Dosage: 20 MILLIGRAM;
     Route: 058
     Dates: start: 20050226, end: 20101201

REACTIONS (8)
  - MUSCLE ATROPHY [None]
  - INJECTION SITE DISCOLOURATION [None]
  - PALPITATIONS [None]
  - DYSPNOEA [None]
  - INJECTION SITE PAIN [None]
  - INJECTION SITE ERYTHEMA [None]
  - LIPOATROPHY [None]
  - INJECTION SITE HAEMATOMA [None]
